FAERS Safety Report 22174828 (Version 1)
Quarter: 2023Q2

REPORT INFORMATION
  Report Type: Spontaneous
  Country: US (occurrence: US)
  Receive Date: 20230405
  Receipt Date: 20230405
  Transmission Date: 20230722
  Serious: Yes (Other)
  Sender: FDA-Public Use
  Company Number: US-STRIDES ARCOLAB LIMITED-2022SP017668

PATIENT
  Age: 34 Year
  Sex: Male

DRUGS (18)
  1. BUTALBITAL, ACETAMINOPHEN, AND CAFFEINE [Suspect]
     Active Substance: ACETAMINOPHEN\BUTALBITAL\CAFFEINE
     Indication: Intracranial hypotension
     Dosage: UNK
     Route: 065
  2. BUTALBITAL, ACETAMINOPHEN, AND CAFFEINE [Suspect]
     Active Substance: ACETAMINOPHEN\BUTALBITAL\CAFFEINE
     Indication: Headache
  3. BUTALBITAL, ACETAMINOPHEN, AND CAFFEINE [Suspect]
     Active Substance: ACETAMINOPHEN\BUTALBITAL\CAFFEINE
     Indication: Visual snow syndrome
  4. GABAPENTIN [Suspect]
     Active Substance: GABAPENTIN
     Indication: Intracranial hypotension
     Dosage: UNK
     Route: 065
  5. GABAPENTIN [Suspect]
     Active Substance: GABAPENTIN
     Indication: Headache
  6. GABAPENTIN [Suspect]
     Active Substance: GABAPENTIN
     Indication: Visual snow syndrome
  7. AMITRIPTYLINE [Suspect]
     Active Substance: AMITRIPTYLINE
     Indication: Intracranial hypotension
     Dosage: UNK
     Route: 065
  8. AMITRIPTYLINE [Suspect]
     Active Substance: AMITRIPTYLINE
     Indication: Headache
  9. AMITRIPTYLINE [Suspect]
     Active Substance: AMITRIPTYLINE
     Indication: Visual snow syndrome
  10. LOSARTAN [Suspect]
     Active Substance: LOSARTAN
     Indication: Intracranial hypotension
     Dosage: UNK
     Route: 065
  11. LOSARTAN [Suspect]
     Active Substance: LOSARTAN
     Indication: Headache
  12. LOSARTAN [Suspect]
     Active Substance: LOSARTAN
     Indication: Visual snow syndrome
  13. MAGNESIUM [Suspect]
     Active Substance: MAGNESIUM
     Indication: Intracranial hypotension
     Dosage: UNK
     Route: 065
  14. MAGNESIUM [Suspect]
     Active Substance: MAGNESIUM
     Indication: Headache
  15. MAGNESIUM [Suspect]
     Active Substance: MAGNESIUM
     Indication: Visual snow syndrome
  16. METOPROLOL [Suspect]
     Active Substance: METOPROLOL
     Indication: Intracranial hypotension
     Dosage: UNK
     Route: 065
  17. METOPROLOL [Suspect]
     Active Substance: METOPROLOL
     Indication: Headache
  18. METOPROLOL [Suspect]
     Active Substance: METOPROLOL
     Indication: Visual snow syndrome

REACTIONS (1)
  - Drug ineffective for unapproved indication [Unknown]
